FAERS Safety Report 8837248 (Version 1)
Quarter: 2012Q4

REPORT INFORMATION
  Report Type: 
  Country: DE (occurrence: BR)
  Receive Date: 20121012
  Receipt Date: 20121012
  Transmission Date: 20130627
  Serious: Yes (Other)
  Sender: FDA-Public Use
  Company Number: 2012SP002778

PATIENT
  Age: 55 Year
  Sex: Male
  Weight: 78 kg

DRUGS (2)
  1. OMNARIS NASAL SPRAY [Suspect]
     Indication: NASAL CONGESTION
     Route: 045
     Dates: start: 20120924, end: 20120926
  2. OMNARIS NASAL SPRAY [Suspect]
     Indication: RHINORRHOEA
     Route: 045
     Dates: start: 20120924, end: 20120926

REACTIONS (4)
  - Unevaluable event [Not Recovered/Not Resolved]
  - Blindness [Not Recovered/Not Resolved]
  - Overdose [Recovered/Resolved]
  - Off label use [Not Recovered/Not Resolved]
